FAERS Safety Report 4554419-9 (Version None)
Quarter: 2005Q1

REPORT INFORMATION
  Report Type: 
  Country: None (occurrence: None)
  Receive Date: 20041230
  Receipt Date: 20040910
  Transmission Date: 20050727
  Serious: Yes (Hospitalization)
  Sender: FDA-Public Use
  Company Number: US-2004-026616

PATIENT
  Sex: Female

DRUGS (2)
  1. BETAPACE [Suspect]
     Indication: LONG QT SYNDROME
     Dosage: ORAL
     Route: 048
  2. ZITHROMAX [Concomitant]

REACTIONS (1)
  - VENTRICULAR TACHYCARDIA [None]
